FAERS Safety Report 7083633-6 (Version None)
Quarter: 2010Q4

REPORT INFORMATION
  Report Type: 
  Country: None (occurrence: None)
  Receive Date: 20101104
  Receipt Date: 20101028
  Transmission Date: 20110411
  Serious: Yes (Death, Life-Threatening, Other)
  Sender: FDA-Public Use
  Company Number: JP-SANOFI-AVENTIS-2010SA036573

PATIENT
  Age: 69 Year
  Sex: Male
  Weight: 60 kg

DRUGS (9)
  1. PLAVIX [Suspect]
     Indication: ANGINA PECTORIS
     Route: 048
     Dates: start: 20100610, end: 20100618
  2. TICLOPIDINE HCL [Suspect]
     Route: 048
     Dates: start: 20100512, end: 20100610
  3. ARTIST [Concomitant]
     Route: 048
     Dates: start: 20100512, end: 20100616
  4. 8-HOUR BAYER [Concomitant]
     Route: 048
     Dates: end: 20100618
  5. URSO 250 [Concomitant]
     Route: 048
     Dates: start: 20100610
  6. EPADEL [Concomitant]
     Route: 048
     Dates: start: 20100512, end: 20100616
  7. MICARDIS [Concomitant]
     Route: 048
     Dates: end: 20100616
  8. MEVALOTIN [Concomitant]
     Route: 048
     Dates: end: 20100616
  9. TAKEPRON [Concomitant]
     Route: 048
     Dates: end: 20100618

REACTIONS (3)
  - CHOLESTASIS [None]
  - GRANULOCYTOPENIA [None]
  - SEPSIS [None]
